FAERS Safety Report 4892136-6 (Version None)
Quarter: 2006Q1

REPORT INFORMATION
  Report Type: 
  Country: None (occurrence: None)
  Receive Date: 20060124
  Receipt Date: 20051114
  Transmission Date: 20060701
  Serious: No
  Sender: FDA-Public Use
  Company Number: MK200511-0188-1

PATIENT
  Age: 48 Year
  Sex: Female

DRUGS (2)
  1. NEUTROSPEC [Suspect]
     Indication: ARTHRITIS INFECTIVE
     Dosage: 27 MCI, ONE TIME, IV
     Route: 042
     Dates: start: 20051114, end: 20051114
  2. PREDNISONE [Concomitant]

REACTIONS (5)
  - DIARRHOEA [None]
  - DIZZINESS [None]
  - FEELING HOT [None]
  - HYPOTENSION [None]
  - VOMITING [None]
